FAERS Safety Report 9929764 (Version 1)
Quarter: 2014Q1

REPORT INFORMATION
  Report Type: Report from Study
  Country: NL (occurrence: NL)
  Receive Date: 20140227
  Receipt Date: 20140227
  Transmission Date: 20141002
  Serious: Yes (Hospitalization)
  Sender: FDA-Public Use
  Company Number: NL-B.I. PHARMACEUTICALS,INC./RIDGEFIELD-2014-BI-07763NL

PATIENT
  Age: 80 Year
  Sex: Female

DRUGS (10)
  1. PRADAXA [Suspect]
     Indication: CEREBROVASCULAR ACCIDENT
     Dosage: 220 MG
     Route: 065
     Dates: start: 2013
  2. AMOXICILLINE/CLAVULANIC ACID SANDOZ [Suspect]
     Indication: RESPIRATORY TRACT INFECTION
     Dosage: DOSE PER APPLICATION: 500/125 MG
     Route: 065
     Dates: start: 20140214
  3. PERSANTIN [Suspect]
     Indication: PRODUCT USED FOR UNKNOWN INDICATION
     Route: 065
  4. HYDROXOCOBALAMINE [Concomitant]
     Route: 065
  5. ISOSORBIDEMONONITRAAT [Concomitant]
     Dosage: 25 MG
     Route: 065
  6. HYDROCHLOORTHIAZIDE [Concomitant]
     Dosage: 12.5 MG
     Route: 065
  7. PARACETAMOL/CODEINE [Concomitant]
     Dosage: DOSE PER APPLICATION: 500/20MG
     Route: 065
  8. OXAZEPAM [Concomitant]
     Route: 065
  9. TEMAZEPAM [Concomitant]
     Dosage: 10 MG
     Route: 065
  10. ARTELAC [Concomitant]
     Dosage: DOSE PER APPLICATION: 3,2 MG/ML
     Route: 065

REACTIONS (2)
  - Haematoma [Unknown]
  - Drug interaction [Unknown]
